FAERS Safety Report 9834053 (Version 3)
Quarter: 2014Q1

REPORT INFORMATION
  Report Type: Report from Study
  Country: US (occurrence: US)
  Receive Date: 20140122
  Receipt Date: 20140206
  Transmission Date: 20141002
  Serious: Yes (Hospitalization)
  Sender: FDA-Public Use
  Company Number: US-ROCHE-1143667

PATIENT
  Age: 67 Year
  Sex: Male
  Weight: 104.33 kg

DRUGS (14)
  1. BEVACIZUMAB [Suspect]
     Indication: COLORECTAL CANCER METASTATIC
     Dosage: DATE OF MOST RECENT DOSE PRIOR TO EVENT ONSET- 11/SEP/2012, 07/JAN/2014
     Route: 042
     Dates: start: 20120724
  2. OXALIPLATIN [Suspect]
     Indication: COLORECTAL CANCER METASTATIC
     Dosage: DATE OF MOST RECENT DOSE PRIOR TO EVENT ONSET- 25/SEP/2012, 13/NOV/2012
     Route: 042
     Dates: start: 20120724
  3. 5-FLUOROURACIL [Suspect]
     Indication: COLORECTAL CANCER METASTATIC
     Dosage: DATE OF MOST RECENT DOSE PRIOR TO EVENT ONSET- 25/SEP/2012, 07/JAN/2014
     Route: 042
     Dates: start: 20120724
  4. LEUCOVORIN [Suspect]
     Indication: COLORECTAL CANCER METASTATIC
     Dosage: DATE OF MOST RECENT DOSE PRIOR TO EVENT ONSET- 25/SEP/2012, 07/JAN/2014
     Route: 042
     Dates: start: 20120724
  5. NORVASC [Concomitant]
     Indication: HYPERTENSION
     Route: 048
     Dates: start: 199708
  6. CRESTOR [Concomitant]
     Indication: HYPERCHOLESTEROLAEMIA
     Route: 065
     Dates: start: 201205
  7. SIMVASTATIN [Concomitant]
     Indication: HYPERCHOLESTEROLAEMIA
     Route: 048
     Dates: start: 201205
  8. CARDURA [Concomitant]
     Indication: BENIGN PROSTATIC HYPERPLASIA
     Route: 048
     Dates: start: 199708
  9. FLOMAX (UNITED STATES) [Concomitant]
     Indication: BENIGN PROSTATIC HYPERPLASIA
     Route: 048
     Dates: start: 201205
  10. SYNTHROID [Concomitant]
     Indication: HYPOTHYROIDISM
     Route: 065
     Dates: start: 200901
  11. LASIX [Concomitant]
     Indication: OEDEMA
     Route: 065
     Dates: start: 20130227
  12. CITALOPRAM [Concomitant]
     Indication: DEPRESSION
     Route: 065
     Dates: start: 20121231
  13. COUMADIN [Concomitant]
     Indication: PULMONARY EMBOLISM
     Route: 065
     Dates: start: 20120921
  14. PLACEBO [Suspect]
     Indication: COLORECTAL CANCER METASTATIC
     Route: 042

REACTIONS (2)
  - Diverticulitis [Recovered/Resolved]
  - Abdominal pain [Not Recovered/Not Resolved]
